FAERS Safety Report 7350360-7 (Version None)
Quarter: 2011Q1

REPORT INFORMATION
  Report Type: 
  Country: None (occurrence: None)
  Receive Date: 20110314
  Receipt Date: 20110303
  Transmission Date: 20110831
  Serious: Yes (Hospitalization)
  Sender: FDA-Public Use
  Company Number: US-ASTRAZENECA-2011SE12734

PATIENT
  Age: 71 Year
  Sex: Female

DRUGS (2)
  1. NEXIUM [Suspect]
     Dosage: TWO TIMES A DAY.
     Route: 048
  2. NEXIUM [Suspect]
     Dosage: DAILY.
     Route: 048

REACTIONS (3)
  - GASTRIC PERFORATION [None]
  - ABDOMINAL DISCOMFORT [None]
  - GASTRIC OPERATION [None]
